FAERS Safety Report 7503246-9 (Version None)
Quarter: 2011Q2

REPORT INFORMATION
  Report Type: 
  Country: None (occurrence: None)
  Receive Date: 20110525
  Receipt Date: 20110208
  Transmission Date: 20111010
  Serious: No
  Sender: FDA-Public Use
  Company Number: A0912508A

PATIENT
  Sex: Female

DRUGS (1)
  1. BACTROBAN [Suspect]
     Route: 045
     Dates: start: 20101025

REACTIONS (3)
  - COUGH [None]
  - RESPIRATORY DISORDER [None]
  - DYSPNOEA [None]
